FAERS Safety Report 9417155 (Version 2)
Quarter: 2013Q3

REPORT INFORMATION
  Report Type: Spontaneous
  Country: KR (occurrence: None)
  Receive Date: 20130722
  Receipt Date: 20130828
  Transmission Date: 20140515
  Serious: Yes (Hospitalization)
  Sender: FDA-Public Use
  Company Number: TPA2013A06689

PATIENT
  Age: 60 Year
  Sex: Male

DRUGS (2)
  1. COLCHICINE (COLCHICINE) [Suspect]
     Indication: GOUT
     Dosage: 1 MG (1 IN 1 D), STOPPED
  2. CYCLOSPORINE (CICLOSPORIN) [Suspect]

REACTIONS (7)
  - Pelvic pain [None]
  - Tachycardia [None]
  - Arrhythmia [None]
  - Pyrexia [None]
  - Dyspnoea [None]
  - Neuropathy peripheral [None]
  - Myopathy [None]
